FAERS Safety Report 9745005 (Version 2)
Quarter: 2013Q4

REPORT INFORMATION
  Report Type: Spontaneous
  Country: GB (occurrence: GB)
  Receive Date: 20131211
  Receipt Date: 20131230
  Transmission Date: 20140711
  Serious: Yes (Hospitalization)
  Sender: FDA-Public Use
  Company Number: GB-BRISTOL-MYERS SQUIBB COMPANY-19886829

PATIENT
  Sex: Female

DRUGS (18)
  1. BYDUREON [Suspect]
     Route: 058
     Dates: start: 20130820, end: 20131128
  2. AMIODARONE [Concomitant]
     Dosage: 200MG TABS
     Dates: start: 20131111
  3. ATORVASTATIN [Concomitant]
     Dosage: 1DF:80MG TABS
     Dates: start: 20131111
  4. BISOPROLOL [Concomitant]
     Dosage: 1DF:5MG TABS
     Dates: start: 20131111
  5. BUMETANIDE [Concomitant]
     Dosage: 1MG TABS
     Dates: start: 20131111
  6. DIHYDROCODEINE [Concomitant]
     Dosage: 30MG:2 TABS/ 3 TIMES A DAY
     Dates: start: 20131111
  7. ELANTAN LA [Concomitant]
     Dosage: CAPS
     Dates: start: 20131111
  8. ETODOLAC [Concomitant]
     Dosage: 600MG MODIFIED RELEASAE TABS
     Dates: start: 20131111
  9. GLICLAZIDE [Concomitant]
     Dosage: 80MG TABS, 2TABS 2 TIME/D
     Dates: start: 20131111
  10. LEVOTHYROXINE SODIUM [Concomitant]
     Dosage: 100 MG AND 50 MG TABS
     Dates: start: 20131111
  11. METFORMIN [Concomitant]
     Dosage: 500MG TABS:2TABS,3TIME/D
     Dates: start: 20131111
  12. NICORANDIL [Concomitant]
     Dosage: 10MG TABS
     Dates: start: 20131111
  13. NITRAZEPAM [Concomitant]
     Dosage: 5MG TABS
     Dates: start: 20131111
  14. OMEPRAZOLE [Concomitant]
     Dosage: 20MG
     Dates: start: 20131111
  15. PARACETAMOL TABS 500 MG [Concomitant]
     Dates: start: 20131111
  16. RAMIPRIL [Concomitant]
     Dates: start: 20131111
  17. ROPINIROLE [Concomitant]
     Dosage: 2TAB,3TIMES/D
     Dates: start: 20131111
  18. DOXYCYCLINE [Concomitant]
     Dosage: 100MG CAPS
     Dates: start: 20131111

REACTIONS (4)
  - Oedema [Unknown]
  - Rash [Unknown]
  - Glomerular filtration rate decreased [Unknown]
  - Weight decreased [Unknown]
